FAERS Safety Report 14830961 (Version 1)
Quarter: 2018Q2

REPORT INFORMATION
  Report Type: Report from Study
  Country: FR (occurrence: FR)
  Receive Date: 20180430
  Receipt Date: 20180430
  Transmission Date: 20180711
  Serious: Yes (Hospitalization, Other)
  Sender: FDA-Public Use
  Company Number: FR-SHIRE-FR201805541

PATIENT

DRUGS (10)
  1. CYTARABINE. [Suspect]
     Active Substance: CYTARABINE
     Indication: ACUTE LYMPHOCYTIC LEUKAEMIA
     Dosage: 20 MG, UNK
     Route: 037
     Dates: start: 20170925, end: 20170925
  2. 6-MERCAPTOPURINE MONOHYDRATE [Suspect]
     Active Substance: MERCAPTOPURINE
     Indication: ACUTE LYMPHOCYTIC LEUKAEMIA
     Dosage: 30 MG, UNK
     Route: 048
     Dates: start: 20170923, end: 20171006
  3. VINCRISTINE [Suspect]
     Active Substance: VINCRISTINE
     Indication: ACUTE LYMPHOCYTIC LEUKAEMIA
     Dosage: 0.7 MG, UNK
     Route: 042
     Dates: start: 20171007, end: 20171007
  4. VINCRISTINE [Suspect]
     Active Substance: VINCRISTINE
     Dosage: 0.7 MG, UNK
     Route: 042
     Dates: start: 20171014, end: 20171014
  5. METHOTREXATE. [Suspect]
     Active Substance: METHOTREXATE
     Indication: ACUTE LYMPHOCYTIC LEUKAEMIA
     Dosage: 8 MG, UNK
     Route: 037
     Dates: start: 20170925, end: 20170925
  6. PEGASPARGASE [Suspect]
     Active Substance: PEGASPARGASE
     Indication: ACUTE LYMPHOCYTIC LEUKAEMIA
     Dosage: 1280 IU, UNK
     Route: 042
     Dates: start: 20171007, end: 20171104
  7. CYCLOPHOSPHAMIDE. [Suspect]
     Active Substance: CYCLOPHOSPHAMIDE
     Indication: ACUTE LYMPHOCYTIC LEUKAEMIA
     Dosage: 510 MG, UNK
     Route: 042
     Dates: start: 20170923, end: 20170923
  8. CYTARABINE. [Suspect]
     Active Substance: CYTARABINE
     Dosage: 38.5 MG, UNK
     Route: 042
     Dates: start: 20170925, end: 20170928
  9. HYDROCORTISONE. [Suspect]
     Active Substance: HYDROCORTISONE
     Indication: ACUTE LYMPHOCYTIC LEUKAEMIA
     Dosage: 10 MG, UNK
     Route: 037
     Dates: start: 20170925, end: 20170925
  10. CYTARABINE. [Suspect]
     Active Substance: CYTARABINE
     Dosage: 38.5 MG, UNK
     Route: 042
     Dates: start: 20171002, end: 20171005

REACTIONS (2)
  - Febrile bone marrow aplasia [Recovered/Resolved]
  - Febrile bone marrow aplasia [Unknown]

NARRATIVE: CASE EVENT DATE: 20171015
